FAERS Safety Report 23433837 (Version 1)
Quarter: 2024Q1

REPORT INFORMATION
  Report Type: Spontaneous
  Country: US (occurrence: US)
  Receive Date: 20240123
  Receipt Date: 20240123
  Transmission Date: 20240409
  Serious: Yes (Hospitalization)
  Sender: FDA-Public Use
  Company Number: US-TEVA-VS-3146571

PATIENT
  Age: 41 Year

DRUGS (5)
  1. AJOVY [Suspect]
     Active Substance: FREMANEZUMAB-VFRM
     Indication: Migraine
     Dosage: 225/1.5 MG/ML
     Route: 065
     Dates: start: 2021
  2. LITHIUM CARBONATE [Concomitant]
     Active Substance: LITHIUM CARBONATE
     Indication: Affective disorder
     Dosage: TIME INTERVAL: 0.33333333 DAYS
  3. ZOLOFT [Concomitant]
     Active Substance: SERTRALINE HYDROCHLORIDE
     Indication: Affective disorder
     Route: 065
  4. LATUDA [Concomitant]
     Active Substance: LURASIDONE HYDROCHLORIDE
     Indication: Affective disorder
     Dosage: 1 TABLET IN THE MORNING AND 4 TABLETS IN THE EVENING
  5. CLONAZEPAM [Concomitant]
     Active Substance: CLONAZEPAM
     Indication: Affective disorder
     Dosage: TIME INTERVAL: 0.33333333 DAYS

REACTIONS (1)
  - Mental disorder [Unknown]

NARRATIVE: CASE EVENT DATE: 20231020
